FAERS Safety Report 23107223 (Version 5)
Quarter: 2024Q1

REPORT INFORMATION
  Report Type: Spontaneous
  Country: JP (occurrence: JP)
  Receive Date: 20231026
  Receipt Date: 20240206
  Transmission Date: 20240410
  Serious: Yes (Hospitalization, Other)
  Sender: FDA-Public Use
  Company Number: JP-MSD-M2023-44732

PATIENT
  Age: 68 Year
  Sex: Male

DRUGS (5)
  1. KEYTRUDA [Suspect]
     Active Substance: PEMBROLIZUMAB
     Indication: Gingival cancer
     Dosage: 200 MILLIGRAM, Q3W
     Route: 041
     Dates: start: 20231010
  2. CISPLATIN [Suspect]
     Active Substance: CISPLATIN
     Indication: Gingival cancer
     Dosage: 100 MILLIGRAM/SQ. METER, Q3W
     Route: 041
     Dates: start: 202310, end: 202311
  3. FLUOROURACIL [Suspect]
     Active Substance: FLUOROURACIL
     Indication: Gingival cancer
     Dosage: 1000 MILLIGRAM/SQ. METER, QD (CONTINUOUS INTRAVENOUS INFUSION FROM DAY 1 TO DAY 4, EVERY 3 WEEKS)
     Route: 041
     Dates: start: 202310, end: 202311
  4. CETUXIMAB [Suspect]
     Active Substance: CETUXIMAB
     Indication: Gingival cancer
     Dosage: UNK
     Route: 065
  5. PACLITAXEL [Suspect]
     Active Substance: PACLITAXEL
     Dosage: UNK
     Route: 065

REACTIONS (3)
  - Stomatitis [Recovered/Resolved]
  - Febrile neutropenia [Recovered/Resolved]
  - Pneumonia [Recovered/Resolved]

NARRATIVE: CASE EVENT DATE: 20231001
